FAERS Safety Report 8719198 (Version 2)
Quarter: 2012Q4

REPORT INFORMATION
  Report Type: 
  Country: US (occurrence: US)
  Receive Date: 20120813
  Receipt Date: 20120914
  Transmission Date: 20130627
  Serious: No
  Sender: FDA-Public Use
  Company Number: US-BIOGENIDEC-2012BI029613

PATIENT
  Age: 50 None
  Sex: Female

DRUGS (1)
  1. TYSABRI [Suspect]
     Indication: MULTIPLE SCLEROSIS
     Route: 042
     Dates: start: 20080714

REACTIONS (17)
  - Oral fungal infection [Not Recovered/Not Resolved]
  - Large intestine polyp [Unknown]
  - Blood calcium decreased [Unknown]
  - Hand fracture [Recovered/Resolved]
  - Haematochezia [Not Recovered/Not Resolved]
  - Onychomycosis [Not Recovered/Not Resolved]
  - Calcinosis [Not Recovered/Not Resolved]
  - Neck injury [Not Recovered/Not Resolved]
  - Burning sensation [Not Recovered/Not Resolved]
  - Paraesthesia [Not Recovered/Not Resolved]
  - Fall [Recovered/Resolved]
  - Choking [Recovered/Resolved]
  - Back disorder [Unknown]
  - Memory impairment [Not Recovered/Not Resolved]
  - Peroneal nerve palsy [Not Recovered/Not Resolved]
  - Bronchitis [Recovered/Resolved]
  - Arthralgia [Not Recovered/Not Resolved]
